FAERS Safety Report 13997223 (Version 3)
Quarter: 2017Q4

REPORT INFORMATION
  Report Type: Report from Study
  Country: LB (occurrence: LB)
  Receive Date: 20170921
  Receipt Date: 20171005
  Transmission Date: 20180321
  Serious: Yes (Death, Hospitalization, Other)
  Sender: FDA-Public Use
  Company Number: PHHY2017LB130255

PATIENT
  Age: 57 Year
  Sex: Female

DRUGS (6)
  1. DIAMICRON [Concomitant]
     Active Substance: GLICLAZIDE
     Indication: PRODUCT USED FOR UNKNOWN INDICATION
     Dosage: UNK
     Route: 065
  2. METFORMIN [Concomitant]
     Active Substance: METFORMIN HYDROCHLORIDE
     Indication: PRODUCT USED FOR UNKNOWN INDICATION
     Route: 065
  3. COSENTYX [Suspect]
     Active Substance: SECUKINUMAB
     Indication: PSORIATIC ARTHROPATHY
     Dosage: 300 MG, QW
     Route: 058
     Dates: start: 20170705
  4. AMLOR [Concomitant]
     Active Substance: AMLODIPINE BESYLATE
     Indication: PRODUCT USED FOR UNKNOWN INDICATION
     Dosage: UNK
     Route: 065
  5. COSENTYX [Suspect]
     Active Substance: SECUKINUMAB
     Dosage: 300 MG, QMO
     Route: 058
     Dates: end: 20170830
  6. ZYLORIC [Concomitant]
     Active Substance: ALLOPURINOL
     Indication: PRODUCT USED FOR UNKNOWN INDICATION
     Dosage: UNK
     Route: 065

REACTIONS (19)
  - Diastolic dysfunction [Unknown]
  - Urine output decreased [Unknown]
  - Hepatic cirrhosis [Unknown]
  - Infection [Unknown]
  - Septic shock [Fatal]
  - Lethargy [Unknown]
  - Haematochezia [Unknown]
  - Diarrhoea [Unknown]
  - Renal failure [Recovering/Resolving]
  - Generalised oedema [Recovering/Resolving]
  - Hyperkalaemia [Unknown]
  - Gastroenteritis [Unknown]
  - Dehydration [Unknown]
  - Ejection fraction decreased [Unknown]
  - Hypotension [Fatal]
  - Inflammation [Unknown]
  - Cardiac failure congestive [Unknown]
  - Ascites [Unknown]
  - Hepatorenal syndrome [Unknown]

NARRATIVE: CASE EVENT DATE: 20170816
